FAERS Safety Report 7016007-4 (Version None)
Quarter: 2010Q3

REPORT INFORMATION
  Report Type: 
  Country: None (occurrence: None)
  Receive Date: 20100927
  Receipt Date: 20100920
  Transmission Date: 20110219
  Serious: Yes (Other)
  Sender: FDA-Public Use
  Company Number: GB-TEVA-249530ISR

PATIENT
  Age: 29 Year
  Sex: Male

DRUGS (7)
  1. VALPROIC ACID [Suspect]
     Indication: EPILEPSY
     Dates: start: 20090101
  2. VENLAFAXINE HCL [Suspect]
     Indication: BIPOLAR I DISORDER
  3. LYSERGIDE [Suspect]
  4. DIAMORPHINE [Suspect]
  5. METHADONE [Suspect]
  6. OLANZAPINE [Suspect]
     Indication: BIPOLAR I DISORDER
  7. QUETIAPINE [Suspect]
     Indication: BIPOLAR I DISORDER

REACTIONS (1)
  - OSTEOPOROSIS [None]
